FAERS Safety Report 13608364 (Version 1)
Quarter: 2017Q2

REPORT INFORMATION
  Report Type: Spontaneous
  Country: US (occurrence: US)
  Receive Date: 20170602
  Receipt Date: 20170602
  Transmission Date: 20170830
  Serious: No
  Sender: FDA-Public Use
  Company Number: US-PERRIGO-17US000868

PATIENT
  Age: 50 Year
  Sex: Female

DRUGS (2)
  1. AMMONIUM LACTATE. [Suspect]
     Active Substance: AMMONIUM LACTATE
     Indication: DRY SKIN
     Dosage: SMALL AMOUNT, BID
     Route: 061
     Dates: start: 201612, end: 20170105
  2. EPSOM SALT [Suspect]
     Active Substance: MAGNESIUM SULFATE
     Indication: PRODUCT USED FOR UNKNOWN INDICATION
     Dosage: UNKNOWN, UNKNOWN
     Route: 061
     Dates: end: 201701

REACTIONS (1)
  - Skin exfoliation [Recovered/Resolved]

NARRATIVE: CASE EVENT DATE: 201612
